FAERS Safety Report 4876557-3 (Version None)
Quarter: 2005Q4

REPORT INFORMATION
  Report Type: 
  Country: None (occurrence: None)
  Receive Date: 20051206
  Receipt Date: 20051004
  Transmission Date: 20060501
  Serious: No
  Sender: FDA-Public Use
  Company Number: USA0510109848

PATIENT
  Age: 54 Year
  Sex: Female

DRUGS (2)
  1. CYMBALTA [Suspect]
     Indication: FIBROMYALGIA
     Dosage: 60 MG
     Dates: start: 20050901
  2. TRAZODONE [Concomitant]

REACTIONS (4)
  - DIZZINESS [None]
  - EAR DISCOMFORT [None]
  - MALAISE [None]
  - TINNITUS [None]
